FAERS Safety Report 20193794 (Version 1)
Quarter: 2021Q4

REPORT INFORMATION
  Report Type: Spontaneous
  Country: UA (occurrence: UA)
  Receive Date: 20211216
  Receipt Date: 20211216
  Transmission Date: 20220303
  Serious: Yes (Hospitalization, Other)
  Sender: FDA-Public Use
  Company Number: UA-ViiV Healthcare Limited-UA2021EME249828

PATIENT
  Age: 6 Year
  Sex: Female

DRUGS (6)
  1. ABACAVIR [Suspect]
     Active Substance: ABACAVIR
     Indication: HIV infection
     Dosage: UNK
     Dates: start: 2016, end: 20181127
  2. LAMIVUDINE [Suspect]
     Active Substance: LAMIVUDINE
     Indication: HIV infection
     Dosage: UNK
     Dates: start: 2016, end: 20181127
  3. ZIDOVUDINE [Suspect]
     Active Substance: ZIDOVUDINE
     Indication: HIV infection
     Dosage: UNK
     Dates: start: 2016, end: 20181127
  4. DOLUTEGRAVIR [Suspect]
     Active Substance: DOLUTEGRAVIR
     Indication: HIV infection
     Dosage: UNK
  5. LOPINAVIR [Suspect]
     Active Substance: LOPINAVIR
     Indication: HIV infection
     Dosage: UNK
  6. RITONAVIR [Suspect]
     Active Substance: RITONAVIR
     Indication: HIV infection
     Dosage: UNK

REACTIONS (62)
  - Disseminated tuberculosis [Recovered/Resolved]
  - Opportunistic infection [Recovered/Resolved]
  - Immunosuppression [Unknown]
  - Cardio-respiratory arrest [Recovered/Resolved]
  - Malaise [Recovered/Resolved]
  - Asthenia [Recovered/Resolved]
  - Decreased appetite [Recovered/Resolved]
  - Respiratory tract infection viral [Recovered/Resolved]
  - General physical health deterioration [Recovered/Resolved]
  - Dyspnoea [Recovered/Resolved]
  - Lethargy [Recovered/Resolved]
  - Somnolence [Recovered/Resolved]
  - Loss of consciousness [Recovered/Resolved]
  - Cachexia [Recovered/Resolved]
  - Pallor [Recovered/Resolved]
  - Skin atrophy [Recovered/Resolved]
  - Skin turgor decreased [Recovered/Resolved]
  - Mucosal dryness [Recovered/Resolved]
  - Anaemia [Recovered/Resolved]
  - Hyperbilirubinaemia [Recovered/Resolved]
  - Lymphangitis [Recovered/Resolved]
  - Meningitis tuberculous [Recovered/Resolved]
  - Diarrhoea [Recovered/Resolved]
  - Haematochezia [Recovered/Resolved]
  - Herpes zoster [Recovered/Resolved]
  - Rash vesicular [Recovered/Resolved]
  - Enterocolitis haemorrhagic [Recovered/Resolved]
  - Sopor [Recovered/Resolved]
  - Hypotonia [Recovered/Resolved]
  - Face oedema [Recovered/Resolved]
  - Eyelid oedema [Recovered/Resolved]
  - Oedema peripheral [Recovered/Resolved]
  - Lymphadenopathy [Recovered/Resolved]
  - Skin plaque [Recovered/Resolved]
  - Angular cheilitis [Recovered/Resolved]
  - Respiration abnormal [Recovered/Resolved]
  - Extrasystoles [Recovered/Resolved]
  - Hepatomegaly [Recovered/Resolved]
  - Anal incontinence [Recovered/Resolved]
  - Urinary incontinence [Recovered/Resolved]
  - Eye movement disorder [Recovered/Resolved]
  - Musculoskeletal stiffness [Recovered/Resolved]
  - Kernig^s sign [Recovered/Resolved]
  - Periodic limb movement disorder [Recovered/Resolved]
  - Cytomegalovirus infection [Recovered/Resolved]
  - Colitis [Recovered/Resolved]
  - Hepatitis [Recovered/Resolved]
  - Meningitis [Recovered/Resolved]
  - Virologic failure [Unknown]
  - Condition aggravated [Recovered/Resolved]
  - Pyrexia [Recovered/Resolved]
  - Pneumocystis jirovecii pneumonia [Recovered/Resolved]
  - Immune reconstitution inflammatory syndrome [Recovered/Resolved]
  - Tuberculoma of central nervous system [Recovered/Resolved]
  - Paraparesis [Recovered/Resolved]
  - Gait disturbance [Recovered/Resolved]
  - Affect lability [Recovered/Resolved]
  - Cerebrovascular insufficiency [Recovered/Resolved]
  - Epilepsy [Recovered/Resolved]
  - Candida infection [Recovered/Resolved]
  - Drug ineffective [Unknown]
  - Treatment noncompliance [Unknown]

NARRATIVE: CASE EVENT DATE: 20180601
